FAERS Safety Report 6874615-5 (Version None)
Quarter: 2010Q3

REPORT INFORMATION
  Report Type: 
  Country: None (occurrence: None)
  Receive Date: 20100722
  Receipt Date: 20100706
  Transmission Date: 20110219
  Serious: Yes (Hospitalization)
  Sender: FDA-Public Use
  Company Number: DSA_43490_2010

PATIENT
  Age: 61 Year
  Sex: Female

DRUGS (6)
  1. ENALAPRIL MALEATE [Suspect]
     Indication: PRODUCT USED FOR UNKNOWN INDICATION
     Dosage: (5 MG QD ORAL)
     Route: 048
  2. AZITHROMYCIN [Suspect]
     Indication: PRODUCT USED FOR UNKNOWN INDICATION
     Dosage: (250 MG QD ORAL); 1 DAY UNTIL NOT CONTINING)
     Route: 048
  3. PAXIL [Concomitant]
  4. SEROQUEL [Concomitant]
  5. OXAZEPAM [Concomitant]
  6. ALBUTEROL [Concomitant]

REACTIONS (8)
  - COUGH [None]
  - DRUG INTERACTION [None]
  - DYSPNOEA [None]
  - INFLUENZA LIKE ILLNESS [None]
  - LARYNGOSPASM [None]
  - NASAL CONGESTION [None]
  - STRIDOR [None]
  - THROAT TIGHTNESS [None]
